FAERS Safety Report 15358988 (Version 2)
Quarter: 2018Q4

REPORT INFORMATION
  Report Type: Spontaneous
  Country: US (occurrence: US)
  Receive Date: 20180906
  Receipt Date: 20181205
  Transmission Date: 20190204
  Serious: No
  Sender: FDA-Public Use
  Company Number: US-PTC THERAPEUTICS, INC.-US-2018PTC000773

PATIENT

DRUGS (2)
  1. EMFLAZA [Suspect]
     Active Substance: DEFLAZACORT
     Indication: MUSCULAR DYSTROPHY
     Dosage: UNK
     Route: 048
     Dates: start: 20171102
  2. EMFLAZA [Suspect]
     Active Substance: DEFLAZACORT
     Dosage: 96 MG SATURDAY AND SUNDAY
     Route: 048
     Dates: start: 20170530

REACTIONS (11)
  - Nasal congestion [Recovered/Resolved]
  - Feeling hot [Recovered/Resolved]
  - Erythema [Recovered/Resolved]
  - Anger [Not Recovered/Not Resolved]
  - Urticaria [Recovered/Resolved]
  - Drug effect incomplete [Not Recovered/Not Resolved]
  - Hypersensitivity [Recovered/Resolved]
  - Off label use [Unknown]
  - Pruritus [Recovered/Resolved]
  - Abnormal behaviour [Not Recovered/Not Resolved]
  - Rash generalised [Recovered/Resolved]

NARRATIVE: CASE EVENT DATE: 201807
